FAERS Safety Report 5586278-X (Version None)
Quarter: 2008Q1

REPORT INFORMATION
  Report Type: 
  Country: None (occurrence: None)
  Receive Date: 20080108
  Receipt Date: 20080108
  Transmission Date: 20080703
  Serious: Yes (Other)
  Sender: FDA-Public Use
  Company Number: None

PATIENT
  Age: 58 Year
  Sex: Female
  Weight: 112.9457 kg

DRUGS (2)
  1. ZOLPIDEM [Suspect]
     Indication: ANXIETY
     Dosage: 10 MG QHS
     Dates: start: 20071001
  2. ZOLPIDEM [Suspect]
     Indication: DEPRESSION
     Dosage: 10 MG QHS
     Dates: start: 20071001

REACTIONS (2)
  - FATIGUE [None]
  - PHARMACEUTICAL PRODUCT COMPLAINT [None]
